FAERS Safety Report 5493673-6 (Version None)
Quarter: 2007Q4

REPORT INFORMATION
  Report Type: 
  Country: None (occurrence: None)
  Receive Date: 20071015
  Receipt Date: 20070913
  Transmission Date: 20080405
  Serious: No
  Sender: FDA-Public Use
  Company Number: 2007SP003174

PATIENT
  Age: 67 Year
  Sex: Male
  Weight: 190 kg

DRUGS (4)
  1. LUNESTA [Suspect]
     Indication: INSOMNIA
     Dosage: 3 MG; PRN; ORAL, 2 MG; PRN; ORAL; 2 MG; HS; ORAL
     Route: 048
  2. HYZAAR [Concomitant]
  3. VYTORIN [Concomitant]
  4. PLAVIX [Concomitant]

REACTIONS (1)
  - INSOMNIA [None]
